FAERS Safety Report 11451334 (Version 1)
Quarter: 2015Q3

REPORT INFORMATION
  Report Type: Spontaneous
  Country: US (occurrence: None)
  Receive Date: 20150902
  Receipt Date: 20150902
  Transmission Date: 20151125
  Serious: Yes (Hospitalization)
  Sender: FDA-Public Use
  Company Number: None

PATIENT
  Age: 74 Year
  Sex: Female
  Weight: 76.2 kg

DRUGS (5)
  1. VITAMIN C [Concomitant]
     Active Substance: ASCORBIC ACID
  2. ALPRAZOLAM. [Concomitant]
     Active Substance: ALPRAZOLAM
  3. TYLENOL [Concomitant]
     Active Substance: ACETAMINOPHEN
  4. LISINOPRIL. [Concomitant]
     Active Substance: LISINOPRIL
  5. HARVONI [Suspect]
     Active Substance: LEDIPASVIR\SOFOSBUVIR
     Indication: HEPATITIS C
     Route: 048
     Dates: start: 201505

REACTIONS (2)
  - Liver abscess [None]
  - Cholecystectomy [None]

NARRATIVE: CASE EVENT DATE: 20150715
